FAERS Safety Report 12776534 (Version 2)
Quarter: 2016Q4

REPORT INFORMATION
  Report Type: Spontaneous
  Country: US (occurrence: US)
  Receive Date: 20160923
  Receipt Date: 20161027
  Transmission Date: 20170207
  Serious: Yes (Other)
  Sender: FDA-Public Use
  Company Number: US-JAZZ-2016-US-016774

PATIENT
  Age: 54 Year
  Sex: Female

DRUGS (55)
  1. PRAZOSIN HCL [Concomitant]
     Active Substance: PRAZOSIN HYDROCHLORIDE
  2. GABAPENTIN. [Concomitant]
     Active Substance: GABAPENTIN
  3. VITAMIN B2 [Concomitant]
     Active Substance: RIBOFLAVIN
  4. MUCINEX [Concomitant]
     Active Substance: GUAIFENESIN
  5. XYREM [Suspect]
     Active Substance: SODIUM OXYBATE
     Dosage: 5 G, FIRST DOSE
     Route: 048
     Dates: start: 201503
  6. AMITIZA [Concomitant]
     Active Substance: LUBIPROSTONE
  7. TRIAMCINOLONE [Concomitant]
     Active Substance: TRIAMCINOLONE
  8. MUPIROCIN. [Concomitant]
     Active Substance: MUPIROCIN
  9. ALBUTEROL. [Concomitant]
     Active Substance: ALBUTEROL
  10. BACLOFEN. [Concomitant]
     Active Substance: BACLOFEN
  11. ANORO ELLIPTA [Concomitant]
     Active Substance: UMECLIDINIUM BROMIDE\VILANTEROL TRIFENATATE
  12. PREVACID [Concomitant]
     Active Substance: LANSOPRAZOLE
  13. SPIRIVA [Concomitant]
     Active Substance: TIOTROPIUM BROMIDE MONOHYDRATE
  14. SPIRONOLACTONE. [Concomitant]
     Active Substance: SPIRONOLACTONE
  15. HYDROCODONE/ACETAMINOPHEN [Concomitant]
     Active Substance: ACETAMINOPHEN\HYDROCODONE
  16. PROAIR HFA [Concomitant]
     Active Substance: ALBUTEROL SULFATE
  17. VITAMIN D [Concomitant]
     Active Substance: CHOLECALCIFEROL
  18. TRILIPIX [Concomitant]
     Active Substance: FENOFIBRIC ACID
  19. VITAMIN B12 [Concomitant]
     Active Substance: CYANOCOBALAMIN
  20. DEPLIN [Concomitant]
     Active Substance: LEVOMEFOLATE CALCIUM
  21. MOVANTIK [Concomitant]
     Active Substance: NALOXEGOL OXALATE
  22. ZYRTEC [Concomitant]
     Active Substance: CETIRIZINE HYDROCHLORIDE
  23. Q-10 CO-ENZYME [Concomitant]
  24. PRISTIQ EXTENDED-RELEASE [Concomitant]
     Active Substance: DESVENLAFAXINE SUCCINATE
  25. ALBUTEROL SULFATE. [Concomitant]
     Active Substance: ALBUTEROL SULFATE
  26. XOPENEX [Concomitant]
     Active Substance: LEVALBUTEROL HYDROCHLORIDE
  27. XYREM [Suspect]
     Active Substance: SODIUM OXYBATE
     Indication: NARCOLEPSY
     Dosage: 2.25 G, BID
     Route: 048
     Dates: start: 200903, end: 200904
  28. XYREM [Suspect]
     Active Substance: SODIUM OXYBATE
     Dosage: 2 G, SECOND DOSE
     Route: 048
     Dates: start: 201212, end: 2013
  29. ADDERALL [Concomitant]
     Active Substance: AMPHETAMINE ASPARTATE\AMPHETAMINE SULFATE\DEXTROAMPHETAMINE SACCHARATE\DEXTROAMPHETAMINE SULFATE
  30. NEXIUM [Concomitant]
     Active Substance: ESOMEPRAZOLE MAGNESIUM
  31. XANAX [Concomitant]
     Active Substance: ALPRAZOLAM
  32. METHOCARBAMOL. [Concomitant]
     Active Substance: METHOCARBAMOL
  33. PROTONIX [Concomitant]
     Active Substance: PANTOPRAZOLE SODIUM
  34. VITAMIN D3 [Concomitant]
     Active Substance: CHOLECALCIFEROL
  35. LIPITOR [Concomitant]
     Active Substance: ATORVASTATIN CALCIUM
  36. FERROUS SULFATE. [Concomitant]
     Active Substance: FERROUS SULFATE
  37. VIIBRYD [Concomitant]
     Active Substance: VILAZODONE HYDROCHLORIDE
  38. ALEVE [Concomitant]
     Active Substance: NAPROXEN SODIUM
  39. PRILOSEC [Concomitant]
     Active Substance: OMEPRAZOLE MAGNESIUM
  40. XYREM [Suspect]
     Active Substance: SODIUM OXYBATE
     Dosage: 4 G, FIRST DOSE
     Route: 048
     Dates: start: 201212, end: 2013
  41. XYREM [Suspect]
     Active Substance: SODIUM OXYBATE
     Dosage: DOSE ADJUSTMENTS
     Route: 048
     Dates: start: 201303, end: 201503
  42. XYREM [Suspect]
     Active Substance: SODIUM OXYBATE
     Dosage: 4 G, SECOND DOSE
     Route: 048
     Dates: start: 201503
  43. NORCO [Concomitant]
     Active Substance: ACETAMINOPHEN\HYDROCODONE BITARTRATE
  44. PONARIS [Concomitant]
     Active Substance: CAJUPUT OIL\EUCALYPTUS OIL\PEPPERMINT OIL
  45. PREMARIN [Concomitant]
     Active Substance: ESTROGENS, CONJUGATED
  46. CLOBETASOL [Concomitant]
     Active Substance: CLOBETASOL
  47. LITHIUM. [Concomitant]
     Active Substance: LITHIUM
  48. XYREM [Suspect]
     Active Substance: SODIUM OXYBATE
     Indication: CATAPLEXY
     Dosage: 3.75 G, BID
     Route: 048
     Dates: start: 200904, end: 200904
  49. XYREM [Suspect]
     Active Substance: SODIUM OXYBATE
     Dosage: 4.5 G, BID
     Route: 048
     Dates: start: 200904, end: 2009
  50. DESONIDE. [Concomitant]
     Active Substance: DESONIDE
  51. BREO ELLIPTA [Concomitant]
     Active Substance: FLUTICASONE FUROATE\VILANTEROL TRIFENATATE
  52. ALPRAZOLAM. [Concomitant]
     Active Substance: ALPRAZOLAM
  53. SINGULAIR [Concomitant]
     Active Substance: MONTELUKAST SODIUM
  54. ABILIFY [Concomitant]
     Active Substance: ARIPIPRAZOLE
  55. DIOVAN [Concomitant]
     Active Substance: VALSARTAN

REACTIONS (15)
  - Chromaturia [Not Recovered/Not Resolved]
  - Balance disorder [Not Recovered/Not Resolved]
  - High frequency ablation [Unknown]
  - Constipation [Not Recovered/Not Resolved]
  - Nervous system disorder [Not Recovered/Not Resolved]
  - Functional gastrointestinal disorder [Not Recovered/Not Resolved]
  - Ligament sprain [Unknown]
  - Emotional disorder [Not Recovered/Not Resolved]
  - Daydreaming [Unknown]
  - Fall [Recovered/Resolved]
  - Feeling abnormal [Not Recovered/Not Resolved]
  - Sudden onset of sleep [Not Recovered/Not Resolved]
  - Somnolence [Not Recovered/Not Resolved]
  - Malaise [Not Recovered/Not Resolved]
  - Hyponatraemia [Unknown]

NARRATIVE: CASE EVENT DATE: 2015
